FAERS Safety Report 5113622-X (Version None)
Quarter: 2006Q3

REPORT INFORMATION
  Report Type: 
  Country: None (occurrence: None)
  Receive Date: 20060920
  Receipt Date: 20060911
  Transmission Date: 20061208
  Serious: Yes (Hospitalization)
  Sender: FDA-Public Use
  Company Number: 2006111057

PATIENT
  Sex: 0

DRUGS (4)
  1. ZOLOFT [Suspect]
     Indication: DEPRESSION
     Dosage: 300 MG (150 MG, 2 IN 1 D)
  2. AKINETON [Concomitant]
  3. HALDOL [Concomitant]
  4. LORAZEPAM [Concomitant]

REACTIONS (1)
  - BONE MARROW FAILURE [None]
